FAERS Safety Report 21595627 (Version 2)
Quarter: 2023Q1

REPORT INFORMATION
  Report Type: Report from Study
  Country: US (occurrence: US)
  Receive Date: 20221115
  Receipt Date: 20230111
  Transmission Date: 20230418
  Serious: Yes (Hospitalization)
  Sender: FDA-Public Use
  Company Number: US-ABBVIE-22K-163-4535339-00

PATIENT
  Age: 66 Year
  Sex: Female

DRUGS (6)
  1. HUMIRA [Suspect]
     Active Substance: ADALIMUMAB
     Indication: Psoriatic arthropathy
     Route: 058
  2. HUMIRA [Suspect]
     Active Substance: ADALIMUMAB
     Indication: Rheumatoid arthritis
     Route: 058
  3. HUMIRA [Suspect]
     Active Substance: ADALIMUMAB
     Route: 058
  4. PFIZER-BIONTECH COVID-19 VACCINE [Concomitant]
     Active Substance: TOZINAMERAN
     Indication: COVID-19 immunisation
     Dosage: TIME INTERVAL: 1 TOTAL: FIRST DOSE (FREQUENCY- ONE IN ONCE)
     Route: 030
     Dates: start: 20210609, end: 20210609
  5. PFIZER-BIONTECH COVID-19 VACCINE [Concomitant]
     Active Substance: TOZINAMERAN
     Indication: COVID-19 immunisation
     Dosage: TIME INTERVAL: 1 TOTAL: SECOND DOSE (FREQUENCY- ONE IN ONCE)
     Route: 030
     Dates: start: 20210630, end: 20210630
  6. PFIZER-BIONTECH COVID-19 VACCINE [Concomitant]
     Active Substance: TOZINAMERAN
     Indication: COVID-19 immunisation
     Dosage: TIME INTERVAL: 1 TOTAL: BOOSTER/THIRD DOSE (FREQUENCY- ONE IN ONCE)
     Route: 030
     Dates: start: 20220209, end: 20220209

REACTIONS (8)
  - Upper respiratory tract infection [Unknown]
  - COVID-19 pneumonia [Unknown]
  - Memory impairment [Unknown]
  - Hypersomnia [Unknown]
  - Cardiac disorder [Unknown]
  - Nasopharyngitis [Unknown]
  - Illness [Unknown]
  - Pneumonia [Unknown]

NARRATIVE: CASE EVENT DATE: 20221101
